FAERS Safety Report 5053306-X (Version None)
Quarter: 2006Q3

REPORT INFORMATION
  Report Type: 
  Country: None (occurrence: None)
  Receive Date: 20060712
  Receipt Date: 20060626
  Transmission Date: 20061208
  Serious: Yes (Hospitalization)
  Sender: FDA-Public Use
  Company Number: DSA_28393_2006

PATIENT
  Sex: Male

DRUGS (5)
  1. RENIVACE [Suspect]
     Indication: CARDIAC FAILURE
     Dosage: 5 MG QD PO
     Route: 048
     Dates: start: 20060401, end: 20060501
  2. ASPIRIN [Suspect]
     Dosage: DF UNK PO
     Route: 048
  3. PANALDINE [Suspect]
     Dosage: DF UNK PO
     Route: 048
  4. LIVALO [Suspect]
     Dosage: DF UNK PO
     Route: 048
  5. SIGMART [Suspect]
     Dosage: DF

REACTIONS (2)
  - LIVER DISORDER [None]
  - LYMPHOCYTE STIMULATION TEST POSITIVE [None]
